FAERS Safety Report 18417089 (Version 1)
Quarter: 2020Q4

REPORT INFORMATION
  Report Type: Spontaneous
  Country: JP (occurrence: JP)
  Receive Date: 20201022
  Receipt Date: 20201022
  Transmission Date: 20210114
  Serious: No
  Sender: FDA-Public Use
  Company Number: JP-ALLERGAN-2039506US

PATIENT
  Age: 5 Decade
  Sex: Female

DRUGS (2)
  1. BIPERIDEN HYDROCHLORIDE [Concomitant]
     Active Substance: BIPERIDEN HYDROCHLORIDE
     Dosage: UNK
  2. ASENAPINE MALEATE - BP [Suspect]
     Active Substance: ASENAPINE MALEATE
     Indication: SCHIZOPHRENIA
     Dosage: 15 MG, QD
     Route: 060

REACTIONS (2)
  - Akathisia [Recovering/Resolving]
  - Dyspnoea [Recovering/Resolving]
